FAERS Safety Report 5007234-6 (Version None)
Quarter: 2006Q1

REPORT INFORMATION
  Report Type: 
  Country: None (occurrence: None)
  Receive Date: 20060320
  Receipt Date: 20050301
  Transmission Date: 20060701
  Serious: Yes (Hospitalization, Other)
  Sender: FDA-Public Use
  Company Number: 2005-03-0149

PATIENT
  Age: 53 Year
  Sex: Female
  Weight: 87.5442 kg

DRUGS (16)
  1. PEG-INTRON [Suspect]
     Indication: HEPATITIS C
     Dosage: 150 MCG QW, SUBCUTANEOUS
     Route: 058
     Dates: start: 20040610, end: 20040705
  2. PEG-INTRON [Suspect]
     Indication: HEPATITIS C
     Dosage: 150 MCG QW, SUBCUTANEOUS
     Route: 058
     Dates: start: 20040610, end: 20050302
  3. PEG-INTRON [Suspect]
     Indication: HEPATITIS C
     Dosage: 150 MCG QW, SUBCUTANEOUS
     Route: 058
     Dates: start: 20050302
  4. REBETOL [Suspect]
     Indication: HEPATITIS C
     Dosage: 120 MG QD, ORAL
     Route: 048
     Dates: start: 20040610, end: 20040705
  5. REBETOL [Suspect]
     Indication: HEPATITIS C
     Dosage: 120 MG QD, ORAL
     Route: 048
     Dates: start: 20040610, end: 20050302
  6. REBETOL [Suspect]
     Indication: HEPATITIS C
     Dosage: 120 MG QD, ORAL
     Route: 048
     Dates: start: 20041110, end: 20050302
  7. HYZAAR [Concomitant]
  8. LISPRO INSULIN AC + HS [Concomitant]
  9. LEXAPRO [Concomitant]
  10. PHENERGAN HCL [Concomitant]
  11. ULTRALENTE INSULIN [Concomitant]
  12. GUAIFENESIN [Concomitant]
  13. COZAAR [Concomitant]
  14. OXYCODONE HCL [Concomitant]
  15. XANAX [Concomitant]
  16. MECLIZINE [Concomitant]

REACTIONS (2)
  - ANAEMIA [None]
  - PANCREATITIS [None]
